FAERS Safety Report 12192210 (Version 1)
Quarter: 2016Q1

REPORT INFORMATION
  Report Type: Spontaneous
  Country: US (occurrence: US)
  Receive Date: 20160318
  Receipt Date: 20160318
  Transmission Date: 20160526
  Serious: No
  Sender: FDA-Public Use
  Company Number: US-PFIZER INC-2016127537

PATIENT
  Age: 56 Year
  Sex: Female
  Weight: 74.84 kg

DRUGS (4)
  1. LYRICA [Suspect]
     Active Substance: PREGABALIN
     Indication: FIBROMYALGIA
     Dosage: 100 MG, 2X/DAY
     Route: 048
     Dates: start: 200608
  2. CIPRO [Concomitant]
     Active Substance: CIPROFLOXACIN HYDROCHLORIDE
     Indication: PROPHYLAXIS
  3. TIZANIDINE. [Concomitant]
     Active Substance: TIZANIDINE
     Indication: FIBROMYALGIA
     Dosage: 5 MG, 1X/DAY
     Route: 048
     Dates: start: 2015
  4. AMLODIPINE [Concomitant]
     Active Substance: AMLODIPINE BESYLATE
     Indication: VASCULITIS
     Dosage: 10 MG, 1X/DAY
     Route: 048
     Dates: start: 201402

REACTIONS (11)
  - Feeling abnormal [Unknown]
  - Pre-existing condition improved [Unknown]
  - Somnolence [Not Recovered/Not Resolved]
  - Irritability [Unknown]
  - Therapeutic response unexpected [Unknown]
  - Weight increased [Unknown]
  - Product use issue [Unknown]
  - Nervous system disorder [Unknown]
  - Fluid retention [Not Recovered/Not Resolved]
  - Drug effect delayed [Unknown]
  - Pruritus [Unknown]

NARRATIVE: CASE EVENT DATE: 2006
